FAERS Safety Report 5310284-3 (Version None)
Quarter: 2007Q2

REPORT INFORMATION
  Report Type: 
  Country: None (occurrence: None)
  Receive Date: 20070427
  Receipt Date: 20070417
  Transmission Date: 20071010
  Serious: Yes (Hospitalization)
  Sender: FDA-Public Use
  Company Number: FR-SANOFI-SYNTHELABO-A02200701112

PATIENT
  Age: 83 Year
  Sex: Male

DRUGS (5)
  1. PRITOR [Suspect]
     Indication: HYPERTENSION
     Dosage: UNK
     Route: 048
  2. PRITOR [Suspect]
     Dosage: UNK
     Route: 048
  3. NOVONORM [Suspect]
     Indication: DIABETES MELLITUS
     Dosage: UNK
     Route: 048
  4. ANANDRON [Suspect]
     Indication: PROSTATE CANCER
     Dosage: 2 UNIT
     Route: 048
     Dates: start: 20061201
  5. XATRAL [Suspect]
     Indication: DRUG USE FOR UNKNOWN INDICATION
     Dosage: UNK
     Route: 048

REACTIONS (3)
  - GENERAL PHYSICAL HEALTH DETERIORATION [None]
  - HYPONATRAEMIA [None]
  - VESTIBULAR DISORDER [None]
